FAERS Safety Report 5732658-9 (Version None)
Quarter: 2008Q2

REPORT INFORMATION
  Report Type: 
  Country: None (occurrence: None)
  Receive Date: 20080508
  Receipt Date: 20080428
  Transmission Date: 20081010
  Serious: Yes (Death, Other)
  Sender: FDA-Public Use
  Company Number: HQWYE363116MAY06

PATIENT
  Sex: Female

DRUGS (2)
  1. PREMPRO [Suspect]
  2. MEDROXYPROGESTERONE ACETATE [Suspect]

REACTIONS (2)
  - ENDOMETRIAL CANCER [None]
  - OVARIAN CANCER METASTATIC [None]
